FAERS Safety Report 10816522 (Version 4)
Quarter: 2015Q2

REPORT INFORMATION
  Report Type: Spontaneous
  Country: US (occurrence: US)
  Receive Date: 20150218
  Receipt Date: 20150615
  Transmission Date: 20150821
  Serious: Yes (Hospitalization, Other)
  Sender: FDA-Public Use
  Company Number: US-009507513-1107USA03705

PATIENT
  Sex: Female
  Weight: 75.74 kg

DRUGS (4)
  1. FOSAMAX [Suspect]
     Active Substance: ALENDRONATE SODIUM
     Indication: BONE DENSITY DECREASED
     Dosage: 70 MG, UNK
     Route: 048
     Dates: start: 200402, end: 20080316
  2. FOSAMAX [Suspect]
     Active Substance: ALENDRONATE SODIUM
     Dosage: UNK
     Route: 048
  3. ALENDRONATE SODIUM. [Suspect]
     Active Substance: ALENDRONATE SODIUM
     Indication: BONE DENSITY DECREASED
     Dosage: 70 MG, UNK
     Route: 048
     Dates: start: 20080706, end: 20081007
  4. VITAMINS (UNSPECIFIED) [Concomitant]
     Active Substance: VITAMINS
     Dosage: UNK
     Dates: start: 2003

REACTIONS (18)
  - Onychomycosis [Unknown]
  - Transfusion [Unknown]
  - Femur fracture [Unknown]
  - Femur fracture [Unknown]
  - Hypersensitivity [Unknown]
  - Intramedullary rod insertion [Unknown]
  - Hysterectomy [Unknown]
  - Granuloma [Unknown]
  - Spondyloarthropathy [Unknown]
  - Atelectasis [Unknown]
  - Pulmonary calcification [Unknown]
  - Fibromyalgia [Unknown]
  - Neuropathy peripheral [Unknown]
  - Paraesthesia [Unknown]
  - Gastrooesophageal reflux disease [Unknown]
  - Hip fracture [Unknown]
  - Acquired diaphragmatic eventration [Unknown]
  - Hypoaesthesia [Unknown]

NARRATIVE: CASE EVENT DATE: 20041024
